FAERS Safety Report 15653722 (Version 1)
Quarter: 2018Q4

REPORT INFORMATION
  Report Type: Spontaneous
  Country: FR (occurrence: FR)
  Receive Date: 20181124
  Receipt Date: 20181124
  Transmission Date: 20190205
  Serious: Yes (Death, Life-Threatening, Congenital Anomaly)
  Sender: FDA-Public Use
  Company Number: FR-ANIPHARMA-2018-FR-000184

PATIENT
  Sex: Male

DRUGS (2)
  1. ATACAND [Suspect]
     Active Substance: CANDESARTAN CILEXETIL
     Indication: HYPERTENSION
     Dosage: 8 MG DAILY
     Route: 048
     Dates: end: 20180905
  2. TENORMINE [Concomitant]
     Active Substance: ATENOLOL
     Dosage: UNK
     Route: 065

REACTIONS (6)
  - Congenital joint malformation [Not Recovered/Not Resolved]
  - Foetal growth restriction [Not Recovered/Not Resolved]
  - Renal hypertrophy [Not Recovered/Not Resolved]
  - Foetal death [Fatal]
  - Craniofacial deformity [Not Recovered/Not Resolved]
  - Microcephaly [Not Recovered/Not Resolved]
